FAERS Safety Report 13368516 (Version 1)
Quarter: 2017Q1

REPORT INFORMATION
  Report Type: Spontaneous
  Country: US (occurrence: US)
  Receive Date: 20170324
  Receipt Date: 20170324
  Transmission Date: 20170429
  Serious: No
  Sender: FDA-Public Use
  Company Number: US-PFIZER INC-2017127053

PATIENT
  Age: 66 Year
  Sex: Female
  Weight: 53 kg

DRUGS (2)
  1. ESTRADIOL. [Suspect]
     Active Substance: ESTRADIOL
     Indication: MENOPAUSAL SYMPTOMS
     Dosage: UNK, 2X/WEEK
     Route: 067
     Dates: start: 20170110, end: 20170318
  2. ESTRADIOL. [Suspect]
     Active Substance: ESTRADIOL
     Indication: VULVOVAGINAL DRYNESS

REACTIONS (6)
  - Myalgia [Unknown]
  - Drug ineffective [Not Recovered/Not Resolved]
  - Musculoskeletal stiffness [Not Recovered/Not Resolved]
  - Muscle spasms [Unknown]
  - Dry skin [Unknown]
  - Neck pain [Unknown]

NARRATIVE: CASE EVENT DATE: 201702
